FAERS Safety Report 6961404-6 (Version None)
Quarter: 2010Q3

REPORT INFORMATION
  Report Type: 
  Country: None (occurrence: None)
  Receive Date: 20100901
  Receipt Date: 20100820
  Transmission Date: 20110219
  Serious: Yes (Hospitalization, Other)
  Sender: FDA-Public Use
  Company Number: PHHY2009DE20777

PATIENT
  Sex: Female
  Weight: 63 kg

DRUGS (9)
  1. MYCOPHENOLIC ACID [Suspect]
     Indication: RENAL TRANSPLANT
     Dosage: 720 MG/DAY
     Route: 048
     Dates: start: 20090108
  2. MYCOPHENOLIC ACID [Suspect]
     Dosage: 540 MG/DAY
     Route: 048
     Dates: start: 20090224, end: 20090301
  3. MYCOPHENOLIC ACID [Suspect]
     Dosage: 360 MG/DAY
     Route: 048
     Dates: start: 20090305, end: 20090711
  4. MYCOPHENOLIC ACID [Suspect]
     Dosage: 360 MG/DAY
     Route: 048
     Dates: start: 20090716
  5. TACROLIMUS [Concomitant]
     Indication: RENAL TRANSPLANT
     Dosage: 9 MG/DAY
     Route: 048
     Dates: start: 20080727
  6. TACROLIMUS [Concomitant]
     Dosage: 8.5 MG/DAY
     Route: 048
     Dates: start: 20090128, end: 20090129
  7. TACROLIMUS [Concomitant]
     Dosage: 15 MG/DAY
     Route: 048
     Dates: start: 20090130, end: 20090711
  8. TACROLIMUS [Concomitant]
     Dosage: 15 MG/DAY
     Route: 048
     Dates: start: 20090716
  9. TACROLIMUS [Concomitant]
     Dosage: 4-11 MG/DAY

REACTIONS (4)
  - ACUTE PRERENAL FAILURE [None]
  - COMPLICATIONS OF TRANSPLANTED KIDNEY [None]
  - PNEUMONIA [None]
  - URINARY RETENTION [None]
